FAERS Safety Report 11555956 (Version 1)
Quarter: 2015Q3

REPORT INFORMATION
  Report Type: Spontaneous
  Country: US (occurrence: US)
  Receive Date: 20150925
  Receipt Date: 20150925
  Transmission Date: 20151125
  Serious: No
  Sender: FDA-Public Use
  Company Number: US-WATSON-2014-20812

PATIENT
  Sex: Male

DRUGS (1)
  1. CHLORDIAZEPOXIDE HYDROCHLORIDE (WATSON LABORATORIES) [Suspect]
     Active Substance: CHLORDIAZEPOXIDE HYDROCHLORIDE
     Indication: MUSCLE TIGHTNESS
     Dosage: 5 MG, TID
     Route: 048

REACTIONS (1)
  - Drug ineffective [Unknown]
